FAERS Safety Report 13066527 (Version 1)
Quarter: 2016Q4

REPORT INFORMATION
  Report Type: Spontaneous
  Country: IE (occurrence: IE)
  Receive Date: 20161227
  Receipt Date: 20161227
  Transmission Date: 20170207
  Serious: Yes (Hospitalization)
  Sender: FDA-Public Use
  Company Number: IE-JNJFOC-20161219154

PATIENT
  Age: 49 Year
  Sex: Female

DRUGS (2)
  1. SERTRALINE ACTAVIS [Concomitant]
     Active Substance: SERTRALINE HYDROCHLORIDE
     Route: 050
  2. STELARA [Suspect]
     Active Substance: USTEKINUMAB
     Indication: PSORIASIS
     Route: 058
     Dates: start: 20140812

REACTIONS (2)
  - Rib fracture [Unknown]
  - Lung perforation [Unknown]

NARRATIVE: CASE EVENT DATE: 20161215
